FAERS Safety Report 21377689 (Version 1)
Quarter: 2022Q3

REPORT INFORMATION
  Report Type: Other
  Country: None (occurrence: US)
  Receive Date: 20220926
  Receipt Date: 20220926
  Transmission Date: 20221027
  Serious: Yes (Other)
  Sender: FDA-Public Use
  Company Number: US-ACIC Fine Chemicals Inc-2133197

PATIENT
  Age: 10 Year
  Sex: Male

DRUGS (5)
  1. TRANEXAMIC ACID [Suspect]
     Active Substance: TRANEXAMIC ACID
     Indication: Cardiac operation
     Route: 040
  2. TRANEXAMIC ACID [Suspect]
     Active Substance: TRANEXAMIC ACID
     Route: 042
  3. TRANEXAMIC ACID [Suspect]
     Active Substance: TRANEXAMIC ACID
     Route: 040
  4. FEIBA [Suspect]
     Active Substance: ANTI-INHIBITOR COAGULANT COMPLEX
  5. FEIBA [Suspect]
     Active Substance: ANTI-INHIBITOR COAGULANT COMPLEX
     Route: 065

REACTIONS (4)
  - Aortic thrombosis [Recovering/Resolving]
  - Haemorrhage [Recovering/Resolving]
  - Coagulopathy [Recovering/Resolving]
  - Off label use [Unknown]
